FAERS Safety Report 23562175 (Version 1)
Quarter: 2024Q1

REPORT INFORMATION
  Report Type: Spontaneous
  Country: DE (occurrence: DE)
  Receive Date: 20240226
  Receipt Date: 20240226
  Transmission Date: 20240410
  Serious: Yes (Other)
  Sender: FDA-Public Use
  Company Number: None

PATIENT
  Sex: Male
  Weight: 115 kg

DRUGS (6)
  1. OZEMPIC [Suspect]
     Active Substance: SEMAGLUTIDE
     Indication: Glucose tolerance impaired
  2. OZEMPIC [Suspect]
     Active Substance: SEMAGLUTIDE
     Indication: Body mass index increased
     Dosage: 0.5 MG, QW
     Route: 058
     Dates: start: 20220405, end: 20230326
  3. OZEMPIC [Suspect]
     Active Substance: SEMAGLUTIDE
     Indication: Glucose tolerance impaired
     Dosage: 0.25 MG, QW
     Route: 058
     Dates: start: 20220330, end: 20220428
  4. OZEMPIC [Suspect]
     Active Substance: SEMAGLUTIDE
     Indication: Body mass index increased
  5. OZEMPIC [Suspect]
     Active Substance: SEMAGLUTIDE
     Indication: Body mass index increased
  6. OZEMPIC [Suspect]
     Active Substance: SEMAGLUTIDE
     Indication: Glucose tolerance impaired
     Dosage: 1 MG, QW
     Route: 058
     Dates: start: 20230402

REACTIONS (2)
  - Papillary thyroid cancer [Unknown]
  - Product use in unapproved indication [Unknown]

NARRATIVE: CASE EVENT DATE: 20220330
